FAERS Safety Report 15250066 (Version 1)
Quarter: 2018Q3

REPORT INFORMATION
  Report Type: Report from Study
  Country: FR (occurrence: FR)
  Receive Date: 20180807
  Receipt Date: 20180807
  Transmission Date: 20181010
  Serious: Yes (Hospitalization, Other)
  Sender: FDA-Public Use
  Company Number: FR-TEVA-2018-FR-935620

PATIENT
  Sex: Male

DRUGS (12)
  1. HYDROCORTISONE. [Suspect]
     Active Substance: HYDROCORTISONE
     Indication: ACUTE LYMPHOCYTIC LEUKAEMIA
     Dosage: 15 MG, UNK
     Route: 037
     Dates: start: 20171101, end: 20171101
  2. CYCLOPHOSPHAMIDE. [Suspect]
     Active Substance: CYCLOPHOSPHAMIDE
     Indication: ACUTE LYMPHOCYTIC LEUKAEMIA
     Dosage: 1040 MG, UNK
     Route: 042
     Dates: start: 20171030, end: 20171030
  3. PARACETAMOL [Concomitant]
     Active Substance: ACETAMINOPHEN
     Indication: PRODUCT USED FOR UNKNOWN INDICATION
     Route: 065
  4. CYTARABINE. [Suspect]
     Active Substance: CYTARABINE
     Indication: ACUTE LYMPHOCYTIC LEUKAEMIA
     Dosage: 75 MG, UNK
     Route: 042
     Dates: start: 20171101, end: 20171111
  5. CYTARABINE. [Suspect]
     Active Substance: CYTARABINE
     Dosage: 30 MG, UNK
     Route: 037
     Dates: start: 20171101, end: 20171101
  6. PEGASPARGASE [Suspect]
     Active Substance: PEGASPARGASE
     Indication: ACUTE LYMPHOCYTIC LEUKAEMIA
     Dosage: 2575 IU, UNK
     Route: 042
     Dates: start: 20171113, end: 20171113
  7. MOPRAL                             /00661201/ [Concomitant]
     Active Substance: OMEPRAZOLE SODIUM
     Indication: GASTROOESOPHAGEAL REFLUX DISEASE
     Route: 065
  8. VINCRISTINE [Suspect]
     Active Substance: VINCRISTINE
     Indication: ACUTE LYMPHOCYTIC LEUKAEMIA
     Dosage: 1.6 MG, UNK
     Route: 042
     Dates: start: 20171113, end: 20171120
  9. BACTRIM [Concomitant]
     Active Substance: SULFAMETHOXAZOLE\TRIMETHOPRIM
     Indication: INFECTION
     Route: 065
  10. METHOTREXATE. [Suspect]
     Active Substance: METHOTREXATE
     Indication: ACUTE LYMPHOCYTIC LEUKAEMIA
     Dosage: 15 MILLIGRAM DAILY; 15 MG, UNK
     Route: 037
     Dates: start: 20171101, end: 20171101
  11. ZOPHREN                            /00955301/ [Concomitant]
     Active Substance: ONDANSETRON
     Indication: NAUSEA
     Route: 065
  12. PURINETHOL [Suspect]
     Active Substance: MERCAPTOPURINE
     Indication: ACUTE LYMPHOCYTIC LEUKAEMIA
     Dosage: 46.4 MG, UNK
     Route: 048
     Dates: start: 20171030, end: 20171112

REACTIONS (1)
  - Febrile bone marrow aplasia [Recovered/Resolved]

NARRATIVE: CASE EVENT DATE: 20171127
